FAERS Safety Report 14263868 (Version 1)
Quarter: 2017Q4

REPORT INFORMATION
  Report Type: Spontaneous
  Country: JP (occurrence: JP)
  Receive Date: 20171208
  Receipt Date: 20171208
  Transmission Date: 20180321
  Serious: Yes (Hospitalization, Other)
  Sender: FDA-Public Use
  Company Number: JP-ALLERGAN-1769563US

PATIENT
  Sex: Male

DRUGS (1)
  1. SILODOSIN - BP [Suspect]
     Active Substance: SILODOSIN
     Indication: DYSURIA
     Dosage: UNK
     Route: 048

REACTIONS (5)
  - Sudden hearing loss [Recovering/Resolving]
  - Pollakiuria [Unknown]
  - Dizziness [Recovering/Resolving]
  - Urinary incontinence [Unknown]
  - Dysuria [Recovering/Resolving]
